FAERS Safety Report 7645922-3 (Version None)
Quarter: 2011Q3

REPORT INFORMATION
  Report Type: 
  Country: None (occurrence: None)
  Receive Date: 20110729
  Receipt Date: 20110718
  Transmission Date: 20111222
  Serious: Yes (Other)
  Sender: FDA-Public Use
  Company Number: US-MERCK-1107USA02296

PATIENT
  Age: 64 Year
  Sex: Female

DRUGS (7)
  1. SINEMET [Suspect]
     Route: 048
     Dates: start: 20010701
  2. ASPIRIN [Concomitant]
     Route: 065
  3. NEURONTIN [Concomitant]
     Route: 065
  4. AMBIEN [Concomitant]
     Route: 065
  5. SINEMET [Suspect]
     Indication: PARKINSON'S DISEASE
     Route: 048
     Dates: start: 20110701
  6. MIRAPEX [Concomitant]
     Route: 065
  7. CARBIDOPA AND LEVODOPA [Suspect]
     Route: 065

REACTIONS (5)
  - GAIT DISTURBANCE [None]
  - TREMOR [None]
  - BACK DISORDER [None]
  - ADVERSE EVENT [None]
  - MOVEMENT DISORDER [None]
